FAERS Safety Report 8417182-7 (Version None)
Quarter: 2012Q2

REPORT INFORMATION
  Report Type: 
  Country: None (occurrence: None)
  Receive Date: 20120606
  Receipt Date: 20120528
  Transmission Date: 20120825
  Serious: Yes (Other)
  Sender: FDA-Public Use
  Company Number: JP-ROCHE-1025078

PATIENT
  Sex: Female
  Weight: 42 kg

DRUGS (8)
  1. MIRCERA [Suspect]
     Route: 058
     Dates: start: 20120328
  2. MIRCERA [Suspect]
     Indication: NEPHROGENIC ANAEMIA
     Route: 058
     Dates: start: 20111012, end: 20111109
  3. INDAPAMIDE [Concomitant]
     Indication: HYPERTENSION
     Route: 048
  4. LOSARTAN POTASSIUM [Concomitant]
     Indication: HYPERTENSION
     Route: 048
  5. NORVASC [Concomitant]
     Indication: HYPERTENSION
     Route: 048
  6. TANATRIL [Concomitant]
     Indication: HYPERTENSION
     Route: 048
  7. CRESTOR [Concomitant]
     Indication: HYPERLIPIDAEMIA
     Route: 048
  8. CYANOCOBALAMIN [Concomitant]
     Indication: ASTHENOPIA
     Dosage: AT THE RIGHT TIME
     Route: 047

REACTIONS (2)
  - ERYTHEMA MULTIFORME [None]
  - EOSINOPHIL COUNT INCREASED [None]
